FAERS Safety Report 10632514 (Version 1)
Quarter: 2014Q4

REPORT INFORMATION
  Report Type: Spontaneous
  Country: US (occurrence: US)
  Receive Date: 20141205
  Receipt Date: 20141205
  Transmission Date: 20150529
  Serious: Yes (Other)
  Sender: FDA-Public Use
  Company Number: US-BRISTOL-MYERS SQUIBB COMPANY-21541743

PATIENT
  Age: 69 Year
  Sex: Female

DRUGS (1)
  1. SPRYCEL (CML) TABS 20 MG [Suspect]
     Active Substance: DASATINIB
     Indication: CHRONIC MYELOID LEUKAEMIA
     Dosage: LOT NUMBER:4C88799E
     Route: 048
     Dates: start: 20130925, end: 201409

REACTIONS (1)
  - Pleural effusion [Unknown]
